FAERS Safety Report 15417314 (Version 1)
Quarter: 2018Q3

REPORT INFORMATION
  Report Type: Spontaneous
  Country: US (occurrence: US)
  Receive Date: 20180924
  Receipt Date: 20180924
  Transmission Date: 20181010
  Serious: No
  Sender: FDA-Public Use
  Company Number: US-AUROBINDO-AUR-APU-2018-031249

PATIENT
  Sex: Female

DRUGS (1)
  1. PHENTERMINE HYDROCHLORIDE TABLETS USP, 37.5 MG [Suspect]
     Active Substance: PHENTERMINE HYDROCHLORIDE
     Indication: WEIGHT DECREASED
     Dosage: UNK, 01 TABLET PER DAY
     Route: 065
     Dates: start: 20180511

REACTIONS (2)
  - Drug ineffective [Unknown]
  - Product quality issue [Unknown]
